FAERS Safety Report 8408126-2 (Version None)
Quarter: 2012Q2

REPORT INFORMATION
  Report Type: 
  Country: None (occurrence: None)
  Receive Date: 20120604
  Receipt Date: 20120529
  Transmission Date: 20120825
  Serious: Yes (Hospitalization, Disabling, Other)
  Sender: FDA-Public Use
  Company Number: US-BAYER-2012-003160

PATIENT
  Age: 21 Year
  Sex: Female
  Weight: 53.515 kg

DRUGS (2)
  1. YAZ [Suspect]
     Dosage: UNK
     Route: 048
     Dates: start: 20020101, end: 20050101
  2. YASMIN [Suspect]
     Dosage: UNK
     Route: 048
     Dates: start: 20020101, end: 20050101

REACTIONS (7)
  - DEPRESSION [None]
  - CHOLELITHIASIS [None]
  - INJURY [None]
  - PAIN [None]
  - CHOLECYSTITIS CHRONIC [None]
  - DEFORMITY [None]
  - ANXIETY [None]
